FAERS Safety Report 25686029 (Version 1)
Quarter: 2025Q3

REPORT INFORMATION
  Report Type: Spontaneous
  Country: US (occurrence: None)
  Receive Date: 20250815
  Receipt Date: 20250815
  Transmission Date: 20251021
  Serious: Yes (Hospitalization)
  Sender: FDA-CTU
  Company Number: None

PATIENT
  Age: 45 Year
  Sex: Male
  Weight: 75 kg

DRUGS (1)
  1. DIVALPROEX SODIUM [Suspect]
     Active Substance: DIVALPROEX SODIUM
     Indication: Schizophrenia
     Dates: start: 20250801, end: 20250808

REACTIONS (4)
  - Hyperammonaemia [None]
  - Encephalopathy [None]
  - Alcohol withdrawal syndrome [None]
  - Mental status changes [None]

NARRATIVE: CASE EVENT DATE: 20250808
